FAERS Safety Report 8813735 (Version 2)
Quarter: 2012Q4

REPORT INFORMATION
  Report Type: 
  Country: PK (occurrence: PK)
  Receive Date: 20120928
  Receipt Date: 20121005
  Transmission Date: 20130627
  Serious: Yes (Hospitalization, Other)
  Sender: FDA-Public Use
  Company Number: PK-RANBAXY-2012RR-60454

PATIENT
  Age: 22 Year
  Sex: Male

DRUGS (6)
  1. DICLOFENAC [Suspect]
     Indication: MUMPS
     Dosage: 100 mg, bid, slow release
     Route: 065
  2. ESOMEPRAZOLE [Suspect]
     Indication: MUMPS
     Dosage: 40 mg, bid
     Route: 065
  3. CEFIXIME [Suspect]
     Indication: MUMPS
     Dosage: 400 mg, tid
     Route: 065
  4. CIPROFLOXACIN [Suspect]
     Indication: PRODUCT USED FOR UNKNOWN INDICATION
     Dosage: 500 mg, bid
     Route: 048
  5. PARACETAMOL [Suspect]
     Indication: PRODUCT USED FOR UNKNOWN INDICATION
     Dosage: 500 mg, tid
     Route: 065
  6. IRON PLUS B VITAMIN COMPLEX [Suspect]
     Indication: PRODUCT USED FOR UNKNOWN INDICATION
     Dosage: UNK
     Route: 065

REACTIONS (2)
  - Large intestine perforation [Recovered/Resolved]
  - Peritonitis [Recovered/Resolved]
